FAERS Safety Report 10450681 (Version 2)
Quarter: 2014Q3

REPORT INFORMATION
  Report Type: Spontaneous
  Country: AR (occurrence: AR)
  Receive Date: 20140912
  Receipt Date: 20140918
  Transmission Date: 20150326
  Serious: Yes (Hospitalization, Other)
  Sender: FDA-Public Use
  Company Number: AR-ASTRAZENECA-2014SE67036

PATIENT
  Age: 41 Year
  Sex: Female
  Weight: 41 kg

DRUGS (3)
  1. CAPRELSA [Suspect]
     Active Substance: VANDETANIB
     Indication: MEDULLARY THYROID CANCER
     Route: 048
     Dates: start: 20140708, end: 20140901
  2. LOPERAMIDE [Concomitant]
     Active Substance: LOPERAMIDE
  3. THYROXINE [Concomitant]
     Active Substance: LEVOTHYROXINE

REACTIONS (4)
  - Cardiac failure [Unknown]
  - Metastases to bone [Unknown]
  - Renal failure chronic [Unknown]
  - Left ventricular failure [Recovered/Resolved]

NARRATIVE: CASE EVENT DATE: 20140901
